FAERS Safety Report 18802351 (Version 1)
Quarter: 2021Q1

REPORT INFORMATION
  Report Type: Spontaneous
  Country: CA (occurrence: CA)
  Receive Date: 20210129
  Receipt Date: 20210129
  Transmission Date: 20210419
  Serious: Yes (Hospitalization)
  Sender: FDA-Public Use
  Company Number: CA-TEVA-2021-CA-1871792

PATIENT
  Age: 76 Year
  Sex: Female
  Weight: 69 kg

DRUGS (8)
  1. ROSUVASTATIN. [Concomitant]
     Active Substance: ROSUVASTATIN
  2. PACLITAXEL INJECTION [Suspect]
     Active Substance: PACLITAXEL
     Indication: OVARIAN CANCER
  3. RAMIPRIL. [Concomitant]
     Active Substance: RAMIPRIL
  4. RANITIDINE. [Concomitant]
     Active Substance: RANITIDINE
  5. DIPHENHYDRAMINE. [Concomitant]
     Active Substance: DIPHENHYDRAMINE
  6. ONDANSETRON [Concomitant]
     Active Substance: ONDANSETRON
  7. LORAZEPAM. [Concomitant]
     Active Substance: LORAZEPAM
  8. CARBOPLATIN. [Suspect]
     Active Substance: CARBOPLATIN
     Indication: OVARIAN CANCER
     Route: 065

REACTIONS (1)
  - Febrile neutropenia [Recovered/Resolved]
